FAERS Safety Report 7798494-7 (Version None)
Quarter: 2011Q4

REPORT INFORMATION
  Report Type: 
  Country: None (occurrence: None)
  Receive Date: 20111005
  Receipt Date: 20110930
  Transmission Date: 20120403
  Serious: No
  Sender: FDA-Public Use
  Company Number: US-PFIZER INC-2011234295

PATIENT
  Sex: Male
  Weight: 95.238 kg

DRUGS (8)
  1. LYRICA [Suspect]
     Dosage: 50 MG,DAILY
     Route: 048
     Dates: start: 20110925, end: 20110928
  2. SYNTHROID [Concomitant]
     Indication: THYROID DISORDER
     Dosage: 7 UG, DAILY
  3. LYRICA [Suspect]
     Indication: DIABETIC NEUROPATHY
     Dosage: 50 MG,DAILY
     Route: 048
     Dates: start: 20110915
  4. TAMSULOSIN HYDROCHLORIDE [Concomitant]
     Indication: PROSTATIC DISORDER
  5. LYRICA [Suspect]
     Dosage: 50 MG, 2X/DAY
     Route: 048
     Dates: end: 20110924
  6. TAMSULOSIN HYDROCHLORIDE [Concomitant]
     Indication: HYPERTENSION
     Dosage: 0.4 MG, DAILY
  7. METFORMIN HYDROCHLORIDE [Concomitant]
     Indication: DIABETES MELLITUS
     Dosage: 500 MG, 2X/DAY
  8. ROSUVASTATIN CALCIUM [Concomitant]
     Indication: BLOOD CHOLESTEROL INCREASED
     Dosage: 40 MG, DAILY

REACTIONS (5)
  - SOMNOLENCE [None]
  - CONFUSIONAL STATE [None]
  - BALANCE DISORDER [None]
  - DIZZINESS [None]
  - GAIT DISTURBANCE [None]
